FAERS Safety Report 4650531-4 (Version None)
Quarter: 2005Q2

REPORT INFORMATION
  Report Type: 
  Country: None (occurrence: None)
  Receive Date: 20050429
  Receipt Date: 20050421
  Transmission Date: 20051028
  Serious: Yes (Other)
  Sender: FDA-Public Use
  Company Number: 2004S1003547

PATIENT
  Age: 5 Year
  Sex: Male

DRUGS (7)
  1. CYSTAGON [Suspect]
     Indication: CYSTINOSIS
     Dosage: 110MG/KG/D THEN 90MG/KG/D, THEN 79MG/KG/D, ORAL
     Route: 048
     Dates: start: 20010501
  2. LEVOTHYROXINE SODIUM [Concomitant]
  3. NUTROPIN [Concomitant]
  4. INDOMETHACIN [Concomitant]
  5. CARNITINE [Concomitant]
  6. POTASSIUM CITRATE [Concomitant]
  7. CYSTEAMINE EYE DROPS [Concomitant]

REACTIONS (2)
  - MASS [None]
  - SKIN LESION [None]
